FAERS Safety Report 19138537 (Version 2)
Quarter: 2021Q2

REPORT INFORMATION
  Report Type: Report from Study
  Country: None (occurrence: US)
  Receive Date: 20210415
  Receipt Date: 20210421
  Transmission Date: 20210717
  Serious: Yes (Other)
  Sender: FDA-Public Use
  Company Number: US-ABBVIE-20K-163-3705675-00

PATIENT
  Sex: Male
  Weight: 108.96 kg

DRUGS (13)
  1. CLONIDINE. [Concomitant]
     Active Substance: CLONIDINE
     Indication: CRANIOCEREBRAL INJURY
  2. QUETIAPINE. [Concomitant]
     Active Substance: QUETIAPINE
     Indication: CRANIOCEREBRAL INJURY
  3. MELOXICAM. [Concomitant]
     Active Substance: MELOXICAM
     Indication: ARTHRALGIA
  4. HUMIRA [Suspect]
     Active Substance: ADALIMUMAB
     Indication: PSORIATIC ARTHROPATHY
     Route: 058
     Dates: start: 202005, end: 202102
  5. DULOXETINE. [Concomitant]
     Active Substance: DULOXETINE
     Indication: CRANIOCEREBRAL INJURY
  6. COVID?19 VACCINE NOS. [Concomitant]
     Active Substance: COVID-19 VACCINE NOS
     Indication: COVID-19 IMMUNISATION
     Dosage: PFIZER
     Route: 030
     Dates: start: 202103, end: 202103
  7. HUMIRA [Suspect]
     Active Substance: ADALIMUMAB
     Indication: RHEUMATOID ARTHRITIS
     Route: 058
     Dates: start: 2018, end: 202005
  8. DEXTROAMPHETAMINE. [Concomitant]
     Active Substance: DEXTROAMPHETAMINE
     Indication: CRANIOCEREBRAL INJURY
  9. GRALISE [Concomitant]
     Active Substance: GABAPENTIN
     Indication: CRANIOCEREBRAL INJURY
  10. BENZTROPINE. [Concomitant]
     Active Substance: BENZTROPINE
     Indication: CRANIOCEREBRAL INJURY
  11. HUMIRA [Suspect]
     Active Substance: ADALIMUMAB
     Route: 058
     Dates: start: 20210411
  12. DONEPEZIL. [Concomitant]
     Active Substance: DONEPEZIL
     Indication: CRANIOCEREBRAL INJURY
  13. MEMANTINE. [Concomitant]
     Active Substance: MEMANTINE
     Indication: CRANIOCEREBRAL INJURY

REACTIONS (6)
  - Arthralgia [Recovered/Resolved]
  - Arthralgia [Recovered/Resolved]
  - Carpal tunnel syndrome [Recovered/Resolved]
  - Foot deformity [Recovered/Resolved]
  - Carpal tunnel syndrome [Recovered/Resolved]
  - Psoriatic arthropathy [Unknown]

NARRATIVE: CASE EVENT DATE: 2019
